FAERS Safety Report 16695787 (Version 1)
Quarter: 2019Q3

REPORT INFORMATION
  Report Type: Report from Study
  Country: None (occurrence: US)
  Receive Date: 20190813
  Receipt Date: 20190813
  Transmission Date: 20191004
  Serious: Yes (Hospitalization, Other)
  Sender: FDA-Public Use
  Company Number: US-ABBVIE-19K-163-2846173-00

PATIENT
  Age: 57 Year
  Sex: Female
  Weight: 69.46 kg

DRUGS (3)
  1. HUMIRA [Suspect]
     Active Substance: ADALIMUMAB
     Indication: RHEUMATOID ARTHRITIS
     Route: 058
     Dates: start: 2018
  2. AMLODIPINE [Concomitant]
     Active Substance: AMLODIPINE BESYLATE
     Indication: HYPERTENSION
  3. HUMIRA [Suspect]
     Active Substance: ADALIMUMAB
     Route: 058
     Dates: end: 201907

REACTIONS (9)
  - Abdominal pain upper [Recovered/Resolved]
  - Skin infection [Not Recovered/Not Resolved]
  - Injection site pain [Unknown]
  - Clostridium difficile colitis [Not Recovered/Not Resolved]
  - Ear infection [Unknown]
  - Infection susceptibility increased [Unknown]
  - Gastrointestinal oedema [Unknown]
  - Abnormal faeces [Unknown]
  - Dehydration [Recovered/Resolved]

NARRATIVE: CASE EVENT DATE: 201903
